FAERS Safety Report 7417876-6 (Version None)
Quarter: 2011Q2

REPORT INFORMATION
  Report Type: 
  Country: None (occurrence: None)
  Receive Date: 20110412
  Receipt Date: 20110412
  Transmission Date: 20111010
  Serious: Yes (Hospitalization)
  Sender: FDA-Public Use
  Company Number: None

PATIENT
  Sex: Female
  Weight: 46.8 kg

DRUGS (18)
  1. DOCUSATE SODIUM [Concomitant]
  2. ACETAMINOPHEN [Concomitant]
  3. FOSINOPRIL SODIUM [Concomitant]
  4. HYDRALAZINE [Concomitant]
  5. DILTIAZEM [Concomitant]
  6. SODIUM CHLORIDE [Concomitant]
  7. EXELON [Concomitant]
  8. WARFARIN SODIUM [Suspect]
     Indication: ATRIAL FIBRILLATION
     Dosage: 3MG DAILY PO  (3 NG DOSE)(WARFARIN=YEARS)
     Route: 048
     Dates: start: 20110121
  9. WARFARIN SODIUM [Suspect]
     Indication: THROMBOSIS PROPHYLAXIS
     Dosage: 3MG DAILY PO  (3 NG DOSE)(WARFARIN=YEARS)
     Route: 048
     Dates: start: 20110121
  10. DIGOXIN [Concomitant]
  11. REQUIP [Concomitant]
  12. METOPROLOL [Concomitant]
  13. MULTI-VITAMIN [Concomitant]
  14. TAMIFLU [Suspect]
  15. BUPROPION XL [Concomitant]
  16. TRAZODONE [Concomitant]
  17. DYAZIDE [Concomitant]
  18. LORATADINE [Concomitant]

REACTIONS (6)
  - SPONTANEOUS HAEMATOMA [None]
  - ABDOMINAL PAIN [None]
  - PAIN IN EXTREMITY [None]
  - ARTHRALGIA [None]
  - FALL [None]
  - MUSCLE HAEMORRHAGE [None]
